FAERS Safety Report 16489516 (Version 3)
Quarter: 2019Q3

REPORT INFORMATION
  Report Type: Report from Study
  Country: JP (occurrence: JP)
  Receive Date: 20190628
  Receipt Date: 20190715
  Transmission Date: 20191004
  Serious: Yes (Disabling)
  Sender: FDA-Public Use
  Company Number: JP-BEH-2019103398

PATIENT
  Age: 84 Year
  Sex: Male
  Weight: 55.7 kg

DRUGS (10)
  1. LASIX [Concomitant]
     Active Substance: FUROSEMIDE
     Indication: PLEURAL EFFUSION
     Route: 065
  2. KAYTWO N [Concomitant]
     Active Substance: MENATETRENONE
     Indication: PROCOAGULANT THERAPY
     Dosage: 10 MILLIGRAM, QD
     Dates: start: 20180405, end: 20180405
  3. BISOPROLOL [Concomitant]
     Active Substance: BISOPROLOL
     Route: 048
  4. BERIPLEX P/N [Suspect]
     Active Substance: COAGULATION FACTOR IX HUMAN\COAGULATION FACTOR VII HUMAN\COAGULATION FACTOR X HUMAN\PROTEIN C\PROTEIN S HUMAN\PROTHROMBIN
     Indication: THERAPEUTIC PROCEDURE
     Dosage: 2000 INTERNATIONAL UNIT, TOT
     Route: 042
     Dates: start: 20180405
  5. AMLODIPINE [Concomitant]
     Active Substance: AMLODIPINE BESYLATE
     Route: 065
  6. BERIPLEX P/N [Suspect]
     Active Substance: COAGULATION FACTOR IX HUMAN\COAGULATION FACTOR VII HUMAN\COAGULATION FACTOR X HUMAN\PROTEIN C\PROTEIN S HUMAN\PROTHROMBIN
     Indication: THERAPEUTIC PROCEDURE
     Dosage: 2000 INTERNATIONAL UNIT, TOT
     Route: 042
     Dates: start: 20180405
  7. WARFARIN [Concomitant]
     Active Substance: WARFARIN
     Indication: EMBOLIC CEREBRAL INFARCTION
     Dosage: 1.5 MILLIGRAM, QD
     Route: 048
     Dates: start: 20110408, end: 20180405
  8. HUMULIN R [Concomitant]
     Active Substance: INSULIN HUMAN
     Route: 065
  9. AZILVA [Concomitant]
     Active Substance: AZILSARTAN KAMEDOXOMIL
     Route: 048
  10. WARFARIN [Concomitant]
     Active Substance: WARFARIN
     Indication: PROPHYLAXIS
     Dosage: 1.5 MILLIGRAM, QD
     Route: 048
     Dates: start: 20180406

REACTIONS (1)
  - Cerebral infarction [Recovered/Resolved with Sequelae]

NARRATIVE: CASE EVENT DATE: 20180406
